FAERS Safety Report 8880174 (Version 5)
Quarter: 2013Q2

REPORT INFORMATION
  Report Type: Report from Study
  Country: DE (occurrence: DE)
  Receive Date: 20121101
  Receipt Date: 20130611
  Transmission Date: 20140414
  Serious: Yes (Hospitalization)
  Sender: FDA-Public Use
  Company Number: PHHO2012DE015690

PATIENT
  Age: 25 Year
  Sex: Female
  Weight: 68 kg

DRUGS (6)
  1. BLINDED AFINITOR [Suspect]
     Indication: TUBEROUS SCLEROSIS
     Dosage: CODE NOT BROKEN
     Dates: start: 20100817, end: 20120921
  2. BLINDED NO TREATMENT RECEIVED [Suspect]
     Indication: TUBEROUS SCLEROSIS
     Dosage: CODE NOT BROKEN
     Dates: start: 20100817, end: 20120921
  3. BLINDED PLACEBO [Suspect]
     Indication: TUBEROUS SCLEROSIS
     Dosage: CODE NOT BROKEN
     Dates: start: 20100817, end: 20120921
  4. BLINDED AFINITOR [Suspect]
     Dosage: CODE NOT BROKEN
     Dates: start: 20110930
  5. BLINDED NO TREATMENT RECEIVED [Suspect]
     Dosage: CODE NOT BROKEN
     Dates: start: 20110930
  6. BLINDED PLACEBO [Suspect]
     Dosage: CODE NOT BROKEN
     Dates: start: 20110930

REACTIONS (1)
  - Epilepsy [Recovered/Resolved]
